FAERS Safety Report 5805011-7 (Version None)
Quarter: 2008Q3

REPORT INFORMATION
  Report Type: 
  Country: None (occurrence: None)
  Receive Date: 20080709
  Receipt Date: 20080708
  Transmission Date: 20090109
  Serious: Yes (Hospitalization)
  Sender: FDA-Public Use
  Company Number: US-BOEHRINGER INGELHEIM GMBH, GERMANY-2008-BP-06574BP

PATIENT
  Age: 50 Year
  Sex: Male
  Weight: 90 kg

DRUGS (8)
  1. APTIVUS/RITONAVIR CAPSULES [Suspect]
     Indication: HIV INFECTION
     Dates: start: 20060101, end: 20080326
  2. FUZEON [Concomitant]
     Route: 030
     Dates: start: 20050201
  3. NORVIR [Concomitant]
     Dates: start: 20060201
  4. SIMVASTATIN [Concomitant]
  5. ATENOLOL [Concomitant]
  6. TRICOR [Concomitant]
  7. HYDROCHLOROTHIAZIDE [Concomitant]
  8. FAMVIR [Concomitant]

REACTIONS (2)
  - CEREBRAL HAEMATOMA [None]
  - HYDROCEPHALUS [None]
